FAERS Safety Report 19775858 (Version 1)
Quarter: 2021Q3

REPORT INFORMATION
  Report Type: Report from Study
  Country: BR (occurrence: BR)
  Receive Date: 20210901
  Receipt Date: 20210901
  Transmission Date: 20211014
  Serious: Yes (Hospitalization, Other)
  Sender: FDA-Public Use
  Company Number: BR-TAKEDA-BR202023015

PATIENT
  Age: 6 Year
  Sex: Male
  Weight: 29 kg

DRUGS (6)
  1. IDURSULFASE [Suspect]
     Active Substance: IDURSULFASE
     Indication: MUCOPOLYSACCHARIDOSIS II
     Dosage: 2 DOSAGE FORM
     Route: 065
  2. IDURSULFASE [Suspect]
     Active Substance: IDURSULFASE
     Dosage: 2 DOSAGE FORM UNKNOWN
     Route: 065
     Dates: start: 201801
  3. RISPERIDONE. [Concomitant]
     Active Substance: RISPERIDONE
     Indication: PSYCHOMOTOR HYPERACTIVITY
     Dosage: UNK
  4. PERICIAZINE [Concomitant]
     Active Substance: PERICIAZINE
     Indication: AGGRESSION
  5. PERICIAZINE [Concomitant]
     Active Substance: PERICIAZINE
     Indication: PSYCHOMOTOR HYPERACTIVITY
  6. IDURSULFASE [Suspect]
     Active Substance: IDURSULFASE
     Dosage: 2 DOSAGE FORM, 1/WEEK
     Route: 042
     Dates: start: 2018

REACTIONS (8)
  - Product availability issue [Unknown]
  - Stress [Recovered/Resolved]
  - Adverse event [Unknown]
  - Psychomotor hyperactivity [Recovered/Resolved]
  - Incorrect dose administered [Unknown]
  - Hypertension [Unknown]
  - Appendicitis [Recovered/Resolved]
  - Therapy interrupted [Unknown]

NARRATIVE: CASE EVENT DATE: 20190924
